FAERS Safety Report 13185174 (Version 1)
Quarter: 2017Q1

REPORT INFORMATION
  Report Type: Spontaneous
  Country: DE (occurrence: DE)
  Receive Date: 20170203
  Receipt Date: 20170203
  Transmission Date: 20170428
  Serious: Yes (Disabling)
  Sender: FDA-Public Use
  Company Number: GXKR2017DE000934

PATIENT

DRUGS (4)
  1. CIPROHEXAL (CIPROFLOXACIN) [Suspect]
     Active Substance: CIPROFLOXACIN
     Indication: LACERATION
     Dosage: UNK
     Route: 048
     Dates: start: 201110
  2. CIPROHEXAL (CIPROFLOXACIN) [Suspect]
     Active Substance: CIPROFLOXACIN
     Indication: NEPHRITIS
     Dosage: UNK
     Route: 048
     Dates: start: 201506
  3. CIPROHEXAL (CIPROFLOXACIN) [Suspect]
     Active Substance: CIPROFLOXACIN
     Indication: CYSTITIS
     Dosage: UNK UKN, UNK
     Route: 048
     Dates: start: 200912
  4. CIPROHEXAL (CIPROFLOXACIN) [Suspect]
     Active Substance: CIPROFLOXACIN
     Indication: CYSTITIS
     Dosage: UNK
     Route: 048
     Dates: start: 201601

REACTIONS (2)
  - Bursitis [Unknown]
  - Tendon pain [Unknown]
